FAERS Safety Report 25222210 (Version 1)
Quarter: 2025Q2

REPORT INFORMATION
  Report Type: Spontaneous
  Country: IT (occurrence: IT)
  Receive Date: 20250421
  Receipt Date: 20250421
  Transmission Date: 20250716
  Serious: Yes (Hospitalization)
  Sender: MYLAN
  Company Number: None

PATIENT
  Age: 32 Year
  Sex: Female

DRUGS (2)
  1. ARIXTRA [Suspect]
     Active Substance: FONDAPARINUX SODIUM
     Indication: Thrombosis prophylaxis
     Dosage: 2.5 MILLIGRAM, QD (2.5MG PER DAY)
     Dates: start: 20250205, end: 20250215
  2. ENOXAPARIN SODIUM [Suspect]
     Active Substance: ENOXAPARIN SODIUM
     Indication: Thrombosis prophylaxis
     Dosage: 8000 INTERNATIONAL UNIT, QD (8000 IU 1 VIAL PER DAY)
     Dates: start: 20250203, end: 20250205

REACTIONS (1)
  - Heparin-induced thrombocytopenia [Recovered/Resolved]

NARRATIVE: CASE EVENT DATE: 20250206
